FAERS Safety Report 7102053-9 (Version None)
Quarter: 2010Q4

REPORT INFORMATION
  Report Type: 
  Country: None (occurrence: None)
  Receive Date: 20101115
  Receipt Date: 20101104
  Transmission Date: 20110411
  Serious: Yes (Hospitalization)
  Sender: FDA-Public Use
  Company Number: US-ROCHE-732402

PATIENT
  Sex: Male

DRUGS (3)
  1. BEVACIZUMAB [Suspect]
     Dosage: LAST DOSE PRIOR TO SAE 08 SEP 2010
     Route: 065
     Dates: start: 20100623
  2. IRINOTECAN HCL [Suspect]
     Dosage: LAST DOSE 08 SEPTEMBER 2010
     Route: 065
     Dates: start: 20100623
  3. CISPLATIN [Suspect]
     Dosage: LAST DOSE ON 08 SEP 2010
     Route: 065
     Dates: start: 20100623

REACTIONS (4)
  - DEHYDRATION [None]
  - NAUSEA [None]
  - OESOPHAGITIS [None]
  - VOMITING [None]
